FAERS Safety Report 23275388 (Version 2)
Quarter: 2023Q4

REPORT INFORMATION
  Report Type: Spontaneous
  Country: NP (occurrence: NP)
  Receive Date: 20231208
  Receipt Date: 20231229
  Transmission Date: 20240110
  Serious: Yes (Hospitalization, Other)
  Sender: FDA-Public Use
  Company Number: None

PATIENT
  Age: 62 Year
  Sex: Female

DRUGS (2)
  1. TELMISARTAN [Interacting]
     Active Substance: TELMISARTAN
     Indication: Hypertension
     Dosage: 40 MG,  UNK
     Route: 048
  2. LITHIUM [Interacting]
     Active Substance: LITHIUM
     Indication: Bipolar I disorder
     Dosage: 600 MG,  UNK
     Route: 048

REACTIONS (9)
  - Tremor [Recovered/Resolved]
  - Dysarthria [Recovered/Resolved]
  - Dystonia [Recovered/Resolved]
  - Drug interaction [Recovered/Resolved]
  - Disorientation [Recovered/Resolved]
  - Dyskinesia [Recovered/Resolved]
  - Diarrhoea [Recovered/Resolved]
  - Asthenia [Recovered/Resolved]
  - Toxicity to various agents [Recovered/Resolved]
